FAERS Safety Report 5728568-3 (Version None)
Quarter: 2008Q2

REPORT INFORMATION
  Report Type: 
  Country: None (occurrence: None)
  Receive Date: 20080502
  Receipt Date: 20080502
  Transmission Date: 20081010
  Serious: Yes (Hospitalization)
  Sender: FDA-Public Use
  Company Number: None

PATIENT
  Sex: Female
  Weight: 87.59 kg

DRUGS (4)
  1. CISPLATIN [Suspect]
     Dosage: 100 MG
  2. DOXORUBICIN HYDROCHLORIDE [Suspect]
     Dosage: 87 MG
  3. TAXOL [Suspect]
     Dosage: 300 MG
  4. NEULASTA [Suspect]
     Dosage: 6 MG

REACTIONS (5)
  - BLOOD CULTURE POSITIVE [None]
  - BLOOD URINE PRESENT [None]
  - CANDIDIASIS [None]
  - CENTRAL LINE INFECTION [None]
  - INTERNATIONAL NORMALISED RATIO DECREASED [None]
